FAERS Safety Report 13036896 (Version 1)
Quarter: 2016Q4

REPORT INFORMATION
  Report Type: Spontaneous
  Country: AU (occurrence: AU)
  Receive Date: 20161216
  Receipt Date: 20161216
  Transmission Date: 20170207
  Serious: Yes (Other)
  Sender: FDA-Public Use
  Company Number: PHHY2016AU171657

PATIENT
  Age: 65 Year

DRUGS (2)
  1. GENTAMICIN. [Suspect]
     Active Substance: GENTAMICIN
     Indication: RETINAL DETACHMENT
     Dosage: 0.5 ML, UNK
     Route: 057
  2. DEXAMETHASONE. [Suspect]
     Active Substance: DEXAMETHASONE
     Indication: RETINAL DETACHMENT
     Dosage: 0.5 ML, UNK
     Route: 057

REACTIONS (1)
  - Ocular toxicity [Unknown]
